FAERS Safety Report 20499737 (Version 1)
Quarter: 2022Q1

REPORT INFORMATION
  Report Type: Spontaneous
  Country: US (occurrence: US)
  Receive Date: 20220222
  Receipt Date: 20220222
  Transmission Date: 20220424
  Serious: No
  Sender: FDA-Public Use
  Company Number: US-UCBSA-2021002744

PATIENT
  Sex: Male

DRUGS (6)
  1. LEVETIRACETAM [Suspect]
     Active Substance: LEVETIRACETAM
     Indication: Chorea
     Dosage: UNKNOWN DOSE
  2. LEVETIRACETAM [Suspect]
     Active Substance: LEVETIRACETAM
     Indication: Off label use
  3. BENZTROPINE MESYLATE [Concomitant]
     Active Substance: BENZTROPINE MESYLATE
     Indication: Chorea
     Dosage: UNKNOWN DOSE
  4. RISPERIDONE [Concomitant]
     Active Substance: RISPERIDONE
     Indication: Chorea
     Dosage: UNKNOWN DOSE
  5. TETRABENAZINE [Concomitant]
     Active Substance: TETRABENAZINE
     Indication: Chorea
     Dosage: UNKNOWN DOSE
  6. TOPIRAMATE [Concomitant]
     Active Substance: TOPIRAMATE
     Indication: Chorea
     Dosage: UNKNOWN DOSE

REACTIONS (2)
  - Drug ineffective for unapproved indication [Unknown]
  - Off label use [Unknown]
